FAERS Safety Report 19352445 (Version 1)
Quarter: 2021Q2

REPORT INFORMATION
  Report Type: Report from Study
  Country: IN (occurrence: IN)
  Receive Date: 20210601
  Receipt Date: 20210601
  Transmission Date: 20210717
  Serious: Yes (Death)
  Sender: FDA-Public Use
  Company Number: NVSC2020IN349840

PATIENT
  Age: 58 Year
  Sex: Female

DRUGS (2)
  1. REVOLADE [Suspect]
     Active Substance: ELTROMBOPAG OLAMINE
     Indication: APLASTIC ANAEMIA
     Dosage: 50 MG, QD
     Route: 048
     Dates: start: 20200213, end: 20200730
  2. REVOLADE [Suspect]
     Active Substance: ELTROMBOPAG OLAMINE
     Dosage: 150 MG, QD
     Route: 048
     Dates: start: 20210503, end: 20210516

REACTIONS (2)
  - Platelet count decreased [Unknown]
  - Death [Fatal]

NARRATIVE: CASE EVENT DATE: 20210503
